FAERS Safety Report 4613930-2 (Version None)
Quarter: 2005Q1

REPORT INFORMATION
  Report Type: 
  Country: None (occurrence: None)
  Receive Date: 20050316
  Receipt Date: 20050304
  Transmission Date: 20050727
  Serious: Yes (Hospitalization, Other)
  Sender: FDA-Public Use
  Company Number: HQWYE656317JAN05

PATIENT
  Age: 37 Year
  Sex: Male

DRUGS (7)
  1. ADVIL [Suspect]
     Indication: INFLUENZA
     Dosage: ORAL
     Route: 048
     Dates: start: 20041127, end: 20041129
  2. AVLOCARDYL (PROPRANOLOL HYDROCHLORIDE, UNSPEC) [Suspect]
     Indication: PALPITATIONS
     Dosage: ORAL
     Route: 048
     Dates: start: 20041115, end: 20041129
  3. LEXOMIL (BROMAZEPAM, ) [Suspect]
     Indication: ANXIETY
     Dosage: ORAL
     Route: 048
     Dates: start: 20030101, end: 20041129
  4. PERFLAGAN (PARACETAMOL, ) [Suspect]
     Indication: INFLUENZA
     Dosage: ORAL
     Route: 048
     Dates: start: 20041127, end: 20041129
  5. ACETAMINOPHEN [Suspect]
     Dosage: INTRAVENOUS
     Route: 042
     Dates: start: 20041130, end: 20041201
  6. STABLON (TIANEPTINE, TABLET) [Suspect]
     Indication: DEPRESSION
     Dosage: ORAL
     Route: 048
     Dates: start: 20030101, end: 20041129
  7. STRESAM (ETIFOXINE, ) [Suspect]
     Indication: PALPITATIONS
     Dosage: ORAL
     Route: 048
     Dates: start: 20041115, end: 20041129

REACTIONS (3)
  - INFLUENZA LIKE ILLNESS [None]
  - LEUKOCYTOSIS [None]
  - TOXIC SKIN ERUPTION [None]
